FAERS Safety Report 6347062-2 (Version None)
Quarter: 2009Q3

REPORT INFORMATION
  Report Type: 
  Country: None (occurrence: None)
  Receive Date: 20090910
  Receipt Date: 20090901
  Transmission Date: 20100115
  Serious: Yes (Other)
  Sender: FDA-Public Use
  Company Number: AU-PFIZER INC-2009264169

PATIENT

DRUGS (1)
  1. PROSTIN E2 [Suspect]
     Dosage: UNK
     Route: 067

REACTIONS (1)
  - VAGINAL LACERATION [None]
